FAERS Safety Report 22204942 (Version 1)
Quarter: 2023Q2

REPORT INFORMATION
  Report Type: Spontaneous
  Country: FR (occurrence: US)
  Receive Date: 20230413
  Receipt Date: 20230413
  Transmission Date: 20230721
  Serious: Yes (Other)
  Sender: FDA-Public Use
  Company Number: FR-APOTEX-2023AP006748

PATIENT
  Age: 82 Year
  Sex: Female

DRUGS (2)
  1. SIROLIMUS [Suspect]
     Active Substance: SIROLIMUS
     Indication: Sarcoma metastatic
     Dosage: 5 MILLIGRAM, QD
     Route: 065
  2. GEMCITABINE [Suspect]
     Active Substance: GEMCITABINE
     Indication: Sarcoma metastatic
     Dosage: 675 MILLIGRAM/SQ. METER, Q.O.WK.
     Route: 065

REACTIONS (4)
  - Neutropenia [Unknown]
  - Toxicity to various agents [Unknown]
  - Fatigue [Unknown]
  - Anaemia [Unknown]
